FAERS Safety Report 5285885-1 (Version None)
Quarter: 2007Q2

REPORT INFORMATION
  Report Type: 
  Country: None (occurrence: None)
  Receive Date: 20070404
  Receipt Date: 20070312
  Transmission Date: 20071010
  Serious: Yes (Other)
  Sender: FDA-Public Use
  Company Number: US-SANOFI-SYNTHELABO-A03200702354

PATIENT
  Sex: Male

DRUGS (10)
  1. ZESTRIL [Concomitant]
     Indication: DRUG USE FOR UNKNOWN INDICATION
     Dosage: UNK
     Route: 065
  2. RESTORIL [Concomitant]
     Indication: DRUG USE FOR UNKNOWN INDICATION
     Dosage: UNK
     Route: 065
  3. LEXAPRO [Concomitant]
     Indication: DRUG USE FOR UNKNOWN INDICATION
     Route: 065
  4. RITALIN [Concomitant]
     Indication: DRUG USE FOR UNKNOWN INDICATION
     Route: 065
  5. AMBIEN [Suspect]
     Indication: INSOMNIA
     Dosage: UNK
     Route: 048
     Dates: start: 20030101
  6. AMBIEN [Suspect]
     Indication: SLEEP WALKING
     Dosage: UNK
     Route: 048
     Dates: start: 20030101
  7. AMBIEN [Suspect]
     Indication: ANXIETY
     Dosage: UNK
     Route: 048
     Dates: start: 20030101
  8. AMBIEN [Suspect]
     Dosage: UNK
     Route: 048
  9. AMBIEN [Suspect]
     Dosage: UNK
     Route: 048
  10. AMBIEN [Suspect]
     Dosage: UNK
     Route: 048

REACTIONS (3)
  - AMNESIA [None]
  - LETHARGY [None]
  - SLEEP WALKING [None]
